FAERS Safety Report 24193193 (Version 1)
Quarter: 2024Q3

REPORT INFORMATION
  Report Type: Report from Study
  Country: CA (occurrence: CA)
  Receive Date: 20240809
  Receipt Date: 20240809
  Transmission Date: 20241016
  Serious: Yes (Death, Hospitalization)
  Sender: ABBVIE
  Company Number: CA-ABBVIE-5831178

PATIENT
  Age: 77 Year
  Sex: Female

DRUGS (4)
  1. VENCLEXTA [Suspect]
     Active Substance: VENETOCLAX
     Indication: Myelodysplastic syndrome
     Dosage: LAST ADMIN DATE: 2024
     Route: 048
     Dates: start: 20240629
  2. VENCLEXTA [Suspect]
     Active Substance: VENETOCLAX
     Indication: Myelodysplastic syndrome
     Dosage: FIRST ADMIN DATE: 2024
     Route: 048
  3. ANASTROZOLE [Concomitant]
     Active Substance: ANASTROZOLE
     Indication: Adjuvant therapy
  4. AZACITIDINE [Concomitant]
     Active Substance: AZACITIDINE
     Indication: Product used for unknown indication
     Dosage: FREQUENCY TEXT: 7 DAYS PER 28 DAYS CYCLE?REDUCED TO 5D PER CYCLE FOR PERSISTENT LOW COUNTS
     Dates: start: 202306

REACTIONS (6)
  - Death [Fatal]
  - Pyrexia [Not Recovered/Not Resolved]
  - Off label use [Unknown]
  - Cellulitis [Not Recovered/Not Resolved]
  - Asthenia [Not Recovered/Not Resolved]
  - Hospitalisation [Recovered/Resolved]

NARRATIVE: CASE EVENT DATE: 20240101
